FAERS Safety Report 12722307 (Version 6)
Quarter: 2016Q4

REPORT INFORMATION
  Report Type: Report from Study
  Country: None (occurrence: BE)
  Receive Date: 20160907
  Receipt Date: 20161031
  Transmission Date: 20170207
  Serious: Yes (Hospitalization)
  Sender: FDA-Public Use
  Company Number: BE-ABBVIE-16P-013-1720273-00

PATIENT
  Age: 66 Year
  Sex: Female

DRUGS (7)
  1. DUODOPA [Suspect]
     Active Substance: CARBIDOPA\LEVODOPA
     Dosage: AM= 10.5 ML; CD= 3.2ML/H DURING 16 HRS; ED= 1.7 ML
     Route: 050
     Dates: start: 20161024
  2. DUODOPA [Suspect]
     Active Substance: CARBIDOPA\LEVODOPA
     Dosage: AM= 10.5 ML; CD= 3ML/H DURING 16 HRS; ED= 1.5 ML
     Route: 050
     Dates: start: 20160913, end: 20161024
  3. PROLOPA 125 DISP [Concomitant]
     Indication: PRODUCT USED FOR UNKNOWN INDICATION
     Dosage: FORM STRENGTH: 100MG/25MGUNIT DOSE : 2TABLETS 3TIMES/DAY +1TABLET ONCE A DAY
  4. DUODOPA [Suspect]
     Active Substance: CARBIDOPA\LEVODOPA
     Indication: PARKINSON^S DISEASE
     Dosage: AM=10.5ML??CD=2ML/HR DURING 16HRS ??ED=1ML
     Route: 050
     Dates: start: 20160822, end: 20160830
  5. PROLOPA 125 DISP [Concomitant]
     Dosage: FORM STRENGTH: 100MG/25MG
  6. PROLOPA 125 HBS [Concomitant]
     Indication: PRODUCT USED FOR UNKNOWN INDICATION
     Dosage: FORM STRENGTH: 100MG/25MG
  7. DUODOPA [Suspect]
     Active Substance: CARBIDOPA\LEVODOPA
     Dosage: AM=10.5MLCD=3.5ML/HR DURING 16HRSED=1.5ML
     Route: 050
     Dates: start: 20160830, end: 20160913

REACTIONS (3)
  - Upper limb fracture [Unknown]
  - Balance disorder [Recovering/Resolving]
  - Fall [Unknown]

NARRATIVE: CASE EVENT DATE: 20160902
